FAERS Safety Report 6173773-8 (Version None)
Quarter: 2009Q2

REPORT INFORMATION
  Report Type: 
  Country: None (occurrence: None)
  Receive Date: 20090429
  Receipt Date: 20090429
  Transmission Date: 20091009
  Serious: Yes (Other)
  Sender: FDA-Public Use
  Company Number: None

PATIENT
  Age: 49 Year
  Sex: Female
  Weight: 63.5036 kg

DRUGS (1)
  1. REQUIP [Suspect]
     Indication: RESTLESS LEGS SYNDROME
     Dosage: 2 MG ONCE DAILY PO
     Route: 048
     Dates: start: 20070401, end: 20090401

REACTIONS (12)
  - AMNESIA [None]
  - ANOREXIA [None]
  - ANXIETY [None]
  - CONFUSIONAL STATE [None]
  - FEAR [None]
  - FEELING GUILTY [None]
  - GAMBLING [None]
  - INSOMNIA [None]
  - MENOPAUSAL SYMPTOMS [None]
  - SOMNOLENCE [None]
  - SUDDEN ONSET OF SLEEP [None]
  - WEIGHT DECREASED [None]
